FAERS Safety Report 9701389 (Version 1)
Quarter: 2013Q4

REPORT INFORMATION
  Report Type: Spontaneous
  Country: US (occurrence: US)
  Receive Date: 20131121
  Receipt Date: 20131121
  Transmission Date: 20140711
  Serious: No
  Sender: FDA-Public Use
  Company Number: US-GILEAD-2008-0016871

PATIENT
  Sex: Male

DRUGS (13)
  1. LETAIRIS [Suspect]
     Indication: PULMONARY ARTERIAL HYPERTENSION
     Route: 048
     Dates: start: 20080419
  2. METOPROLOL ER [Concomitant]
  3. LISINOPRIL [Concomitant]
  4. LASIX [Concomitant]
  5. LIPITOR [Concomitant]
  6. LUMEGAN [Concomitant]
  7. ALPHAGAN-P [Concomitant]
  8. ALLOPURINOL [Concomitant]
  9. SYNTHROID [Concomitant]
  10. PREVACID [Concomitant]
  11. FOLIC ACID [Concomitant]
  12. CENTRUM [Concomitant]
  13. VITAMIN B12 [Concomitant]

REACTIONS (1)
  - Oedema peripheral [None]
